FAERS Safety Report 9581476 (Version 1)
Quarter: 2013Q4

REPORT INFORMATION
  Report Type: Report from Study
  Country: IQ (occurrence: IQ)
  Receive Date: 20131002
  Receipt Date: 20131002
  Transmission Date: 20140711
  Serious: No
  Sender: FDA-Public Use
  Company Number: PHHY2013IQ109443

PATIENT
  Sex: Female

DRUGS (1)
  1. TASIGNA [Suspect]
     Dosage: FOETAL DRUG EXPOSURE VIA FATHER

REACTIONS (3)
  - Exposure via father [Unknown]
  - Delivery [Unknown]
  - Normal newborn [Unknown]
